FAERS Safety Report 15587631 (Version 2)
Quarter: 2019Q1

REPORT INFORMATION
  Report Type: Report from Study
  Country: CA (occurrence: CA)
  Receive Date: 20181105
  Receipt Date: 20190122
  Transmission Date: 20190417
  Serious: Yes (Hospitalization)
  Sender: FDA-Public Use
  Company Number: CA-JNJFOC-20180702521

PATIENT
  Age: 51 Year
  Sex: Male
  Weight: 122.47 kg

DRUGS (1)
  1. STELARA [Suspect]
     Active Substance: USTEKINUMAB
     Indication: PSORIASIS
     Dosage: DRUG STOP DATE WAS ALSO GIVEN AS 25-JUN-2018
     Route: 058
     Dates: start: 20170905, end: 20180725

REACTIONS (2)
  - Psoriasis [Unknown]
  - Intestinal mass [Unknown]

NARRATIVE: CASE EVENT DATE: 2018
